FAERS Safety Report 19209639 (Version 2)
Quarter: 2021Q2

REPORT INFORMATION
  Report Type: Spontaneous
  Country: PT (occurrence: PT)
  Receive Date: 20210503
  Receipt Date: 20210507
  Transmission Date: 20210717
  Serious: Yes (Other)
  Sender: FDA-Public Use
  Company Number: PT-ABBVIE-21K-130-3883076-00

PATIENT
  Age: 69 Year
  Sex: Female
  Weight: 49 kg

DRUGS (6)
  1. BECOZYME [Concomitant]
     Active Substance: VITAMINS
     Indication: PRODUCT USED FOR UNKNOWN INDICATION
     Route: 048
  2. PROPRANOLOL [Concomitant]
     Active Substance: PROPRANOLOL HYDROCHLORIDE
     Indication: PRODUCT USED FOR UNKNOWN INDICATION
     Dosage: BEFORE BREAKFAST
     Route: 048
  3. LEPICORTINOLO [Concomitant]
     Active Substance: PREDNISOLONE
     Indication: PRODUCT USED FOR UNKNOWN INDICATION
     Dosage: IN FASTING
     Route: 048
  4. HUMIRA [Suspect]
     Active Substance: ADALIMUMAB
     Indication: PSORIATIC ARTHROPATHY
     Dosage: 40MG QUINZENAL
     Route: 058
     Dates: start: 20201111, end: 20201223
  5. FOLICIL [Concomitant]
     Active Substance: FOLIC ACID
     Indication: PRODUCT USED FOR UNKNOWN INDICATION
     Dosage: AT LUNCH
     Route: 048
  6. SALAZOPIRINA EN [Concomitant]
     Active Substance: SULFASALAZINE
     Indication: PRODUCT USED FOR UNKNOWN INDICATION
     Dosage: FOR BREAKFAST AND DINNER
     Route: 048

REACTIONS (4)
  - Pruritus [Recovered/Resolved]
  - Erythema [Recovering/Resolving]
  - Gamma-glutamyltransferase increased [Recovering/Resolving]
  - Skin ulcer [Recovered/Resolved]

NARRATIVE: CASE EVENT DATE: 202012
